FAERS Safety Report 10112323 (Version 1)
Quarter: 2014Q2

REPORT INFORMATION
  Report Type: Spontaneous
  Country: US (occurrence: US)
  Receive Date: 20140425
  Receipt Date: 20140425
  Transmission Date: 20141212
  Serious: Yes (Other)
  Sender: FDA-Public Use
  Company Number: US-PFIZER INC-2014114053

PATIENT
  Sex: Male

DRUGS (1)
  1. LYRICA [Suspect]
     Indication: BACK DISORDER
     Dosage: UNK

REACTIONS (6)
  - Bipolar disorder [Unknown]
  - Personality change [Unknown]
  - Anxiety [Unknown]
  - Nervousness [Unknown]
  - Abnormal behaviour [Unknown]
  - Anger [Unknown]
